FAERS Safety Report 14639846 (Version 1)
Quarter: 2018Q1

REPORT INFORMATION
  Report Type: Spontaneous
  Country: US (occurrence: US)
  Receive Date: 20180314
  Receipt Date: 20180314
  Transmission Date: 20180509
  Serious: No
  Sender: FDA-Public Use
  Company Number: None

PATIENT
  Age: 62 Year
  Sex: Female

DRUGS (1)
  1. LETROZOLE TAB 2.5MG [Suspect]
     Active Substance: LETROZOLE

REACTIONS (4)
  - Neuropathy peripheral [None]
  - Paraesthesia [None]
  - Muscle strain [None]
  - Muscular weakness [None]

NARRATIVE: CASE EVENT DATE: 20180313
